FAERS Safety Report 4382505-5 (Version None)
Quarter: 2004Q2

REPORT INFORMATION
  Report Type: 
  Country: None (occurrence: None)
  Receive Date: 20040617
  Receipt Date: 20040608
  Transmission Date: 20050107
  Serious: Yes (Other)
  Sender: FDA-Public Use
  Company Number: DE-2004-026623

PATIENT
  Age: 34 Year
  Sex: Female

DRUGS (1)
  1. MIRENA [Suspect]
     Dosage: 20 UG /DAY, CONT, INTRA-UTERINE
     Route: 015
     Dates: start: 20010101

REACTIONS (2)
  - BENIGN HEPATIC NEOPLASM [None]
  - FOCAL NODULAR HYPERPLASIA [None]
